FAERS Safety Report 8954128 (Version 1)
Quarter: 2012Q4

REPORT INFORMATION
  Report Type: 
  Country: US (occurrence: US)
  Receive Date: 20121207
  Receipt Date: 20121207
  Transmission Date: 20130627
  Serious: No
  Sender: FDA-Public Use
  Company Number: US-GLAXOSMITHKLINE-A0972698A

PATIENT
  Sex: Female

DRUGS (1)
  1. HYCAMTIN [Suspect]
     Indication: BRONCHIAL CARCINOMA
     Dosage: 1MG Unknown
     Route: 048
     Dates: start: 20111019

REACTIONS (1)
  - Adverse event [Unknown]
